FAERS Safety Report 8045552-8 (Version None)
Quarter: 2012Q1

REPORT INFORMATION
  Report Type: 
  Country: None (occurrence: None)
  Receive Date: 20120113
  Receipt Date: 20120106
  Transmission Date: 20120608
  Serious: Yes (Other)
  Sender: FDA-Public Use
  Company Number: US-JNJFOC-20120102495

PATIENT

DRUGS (1)
  1. XARELTO [Suspect]
     Indication: ILL-DEFINED DISORDER
     Route: 048

REACTIONS (2)
  - SPINAL HAEMATOMA [None]
  - OFF LABEL USE [None]
